FAERS Safety Report 6842912-5 (Version None)
Quarter: 2010Q3

REPORT INFORMATION
  Report Type: 
  Country: None (occurrence: None)
  Receive Date: 20100714
  Receipt Date: 20070814
  Transmission Date: 20110219
  Serious: Yes (Other)
  Sender: FDA-Public Use
  Company Number: US-PFIZER INC-2007066165

PATIENT
  Sex: Female
  Weight: 54.4 kg

DRUGS (9)
  1. CHANTIX [Suspect]
     Indication: SMOKING CESSATION THERAPY
     Route: 048
     Dates: start: 20070806, end: 20070814
  2. LISINOPRIL [Concomitant]
     Indication: BLOOD PRESSURE
     Route: 048
  3. VYTORIN [Concomitant]
     Indication: BLOOD CHOLESTEROL
     Route: 048
  4. ACIPHEX [Concomitant]
     Indication: DYSPEPSIA
     Route: 048
  5. CALCIUM [Concomitant]
     Route: 048
  6. ACETYLSALICYLIC ACID [Concomitant]
     Route: 048
  7. IBANDRONATE SODIUM [Concomitant]
     Indication: OSTEOPOROSIS
     Route: 048
  8. REGLAN [Concomitant]
     Indication: GASTRIC DISORDER
     Route: 048
  9. ZANTAC [Concomitant]

REACTIONS (3)
  - EPISTAXIS [None]
  - NAUSEA [None]
  - VOMITING [None]
